FAERS Safety Report 10950540 (Version 1)
Quarter: 2015Q1

REPORT INFORMATION
  Report Type: Spontaneous
  Country: US (occurrence: US)
  Receive Date: 20150324
  Receipt Date: 20150324
  Transmission Date: 20150721
  Serious: No
  Sender: FDA-Public Use
  Company Number: US-GLAXOSMITHKLINE-US2015035486

PATIENT
  Sex: Female

DRUGS (3)
  1. BREO ELLIPTA [Suspect]
     Active Substance: FLUTICASONE FUROATE\VILANTEROL TRIFENATATE
     Indication: CHRONIC OBSTRUCTIVE PULMONARY DISEASE
     Dosage: 1 PUFF(S), QD
     Route: 055
     Dates: start: 201502
  2. NEBULIZED ALBUTEROL [Concomitant]
  3. ALBUTEROL INHALATIONAL POWDER [Concomitant]
     Active Substance: ALBUTEROL

REACTIONS (2)
  - Cough [Unknown]
  - Haemoptysis [Unknown]
